FAERS Safety Report 4427712-8 (Version None)
Quarter: 2004Q3

REPORT INFORMATION
  Report Type: 
  Country: None (occurrence: None)
  Receive Date: 20040812
  Receipt Date: 20040803
  Transmission Date: 20050211
  Serious: Yes (Death)
  Sender: FDA-Public Use
  Company Number: US-SHR-04-024911

PATIENT
  Age: 34 Year
  Sex: Female
  Weight: 54.9 kg

DRUGS (9)
  1. YASMIN (ETHINYLESTRADIOL, DROSPIRENONE) FILM TABLET [Suspect]
     Indication: ACNE
     Dosage: 1 TAB(S), 1X/DAY, ORAL
     Route: 048
     Dates: start: 20031113, end: 20040305
  2. DOXYCYCLINE [Concomitant]
  3. CENTRUM (MINERALS NOS, VITAMINS NOS) [Concomitant]
  4. CITRUCEL (METHYLCELLULOSE) [Concomitant]
  5. BEANO (ALPHA-D-GALACTOSIDASE) [Concomitant]
  6. ALBUTEROL [Concomitant]
  7. ALLEGRA [Concomitant]
  8. FLONASE [Concomitant]
  9. BENZOYL PEROXIDE [Concomitant]

REACTIONS (8)
  - CIRCULATORY COLLAPSE [None]
  - FACE INJURY [None]
  - JOINT INJURY [None]
  - PULMONARY EMBOLISM [None]
  - PULMONARY INFARCTION [None]
  - SUDDEN DEATH [None]
  - THROMBOSIS [None]
  - WEIGHT DECREASED [None]
